FAERS Safety Report 8102569-2 (Version None)
Quarter: 2012Q1

REPORT INFORMATION
  Report Type: 
  Country: None (occurrence: None)
  Receive Date: 20120126
  Receipt Date: 20120114
  Transmission Date: 20120608
  Serious: Yes (Hospitalization)
  Sender: FDA-Public Use
  Company Number: 2012AP000136

PATIENT
  Age: 45 Year
  Sex: Male

DRUGS (2)
  1. ALBUTEROL SULFATE [Suspect]
     Indication: ASTHMA
     Dosage: INH
     Route: 055
  2. METHYLPREDNISOLONE [Suspect]
     Indication: ASTHMA
     Dosage: IV
     Route: 042

REACTIONS (7)
  - RESPIRATORY FAILURE [None]
  - HYPERHIDROSIS [None]
  - SINUS TACHYCARDIA [None]
  - HYPERSENSITIVITY [None]
  - LEUKOCYTOSIS [None]
  - PALLOR [None]
  - DRUG INEFFECTIVE [None]
